FAERS Safety Report 22817033 (Version 2)
Quarter: 2024Q4

REPORT INFORMATION
  Report Type: Spontaneous
  Country: GR (occurrence: GR)
  Receive Date: 20230812
  Receipt Date: 20241223
  Transmission Date: 20250115
  Serious: Yes (Other)
  Sender: TEVA
  Company Number: None

PATIENT
  Age: 43 Year
  Sex: Female
  Weight: 55 kg

DRUGS (1)
  1. AJOVY [Suspect]
     Active Substance: FREMANEZUMAB-VFRM
     Indication: Migraine
     Route: 058
     Dates: start: 20230507

REACTIONS (3)
  - Chorioretinopathy [Unknown]
  - Vision blurred [Unknown]
  - Visual impairment [Unknown]

NARRATIVE: CASE EVENT DATE: 20230510
